FAERS Safety Report 21926891 (Version 2)
Quarter: 2023Q1

REPORT INFORMATION
  Report Type: Spontaneous
  Country: US (occurrence: US)
  Receive Date: 20230130
  Receipt Date: 20230302
  Transmission Date: 20230418
  Serious: No
  Sender: FDA-Public Use
  Company Number: US-PFIZER INC-202300037454

PATIENT
  Age: 49 Year
  Sex: Female

DRUGS (11)
  1. IBRANCE [Suspect]
     Active Substance: PALBOCICLIB
     Indication: Breast cancer metastatic
     Dosage: 125MG 1 TABLET DAILY ON DAYS 1 THROUGH 21 EVERY 28 DAY CYCLE
     Route: 048
     Dates: start: 20230112
  2. IBRANCE [Suspect]
     Active Substance: PALBOCICLIB
     Dosage: 125 MG, CYCLIC, (DAILY FOR 21 DAYS ON, THEN 7 DAYS OFF )
  3. BIOTIN [Concomitant]
     Active Substance: BIOTIN
  4. CALCIUM 600 PLUS VITAMIN D3 [Concomitant]
  5. LETROZOLE [Concomitant]
     Active Substance: LETROZOLE
  6. LUPRON DEPOT [Concomitant]
     Active Substance: LEUPROLIDE ACETATE
  7. VITAMIN B12 [Concomitant]
     Active Substance: CYANOCOBALAMIN
  8. ASCORBIC ACID [Concomitant]
     Active Substance: ASCORBIC ACID
  9. VITAMIN D3 [Concomitant]
     Active Substance: CHOLECALCIFEROL
  10. XGEVA [Concomitant]
     Active Substance: DENOSUMAB
  11. ZOLPIDEM TARTRATE [Concomitant]
     Active Substance: ZOLPIDEM TARTRATE

REACTIONS (2)
  - Headache [Not Recovered/Not Resolved]
  - Fatigue [Unknown]

NARRATIVE: CASE EVENT DATE: 20230114
